FAERS Safety Report 15011066 (Version 1)
Quarter: 2018Q2

REPORT INFORMATION
  Report Type: Report from Study
  Country: CA (occurrence: CA)
  Receive Date: 20180614
  Receipt Date: 20180614
  Transmission Date: 20180711
  Serious: Yes (Death, Hospitalization, Other)
  Sender: FDA-Public Use
  Company Number: PHHY2018CA035104

PATIENT
  Age: 60 Year
  Sex: Male

DRUGS (1)
  1. VOTRIENT [Suspect]
     Active Substance: PAZOPANIB HYDROCHLORIDE
     Indication: METASTATIC RENAL CELL CARCINOMA
     Dosage: 800 MG, UNK
     Route: 048
     Dates: start: 20180206

REACTIONS (4)
  - Pyrexia [Recovering/Resolving]
  - Acute kidney injury [Recovering/Resolving]
  - Cerebrovascular accident [Recovering/Resolving]
  - Death [Fatal]

NARRATIVE: CASE EVENT DATE: 20180609
